FAERS Safety Report 9365986 (Version 1)
Quarter: 2013Q2

REPORT INFORMATION
  Report Type: Spontaneous
  Country: US (occurrence: US)
  Receive Date: 20130625
  Receipt Date: 20130625
  Transmission Date: 20140414
  Serious: Yes (Hospitalization)
  Sender: FDA-Public Use
  Company Number: US-BAYER-2013-075261

PATIENT
  Age: 80 Year
  Sex: Female
  Weight: 61.22 kg

DRUGS (5)
  1. ALKA-SELTZER PLUS ORANGE ZEST COLD FORMULA [Suspect]
     Indication: SINUS HEADACHE
     Dosage: 2 DF, PRN
     Route: 048
     Dates: end: 201106
  2. ALKA-SELTZER PLUS ORANGE ZEST COLD FORMULA [Suspect]
     Indication: SINUS HEADACHE
  3. ALKA-SELTZER PLUS ORANGE ZEST COLD FORMULA [Suspect]
     Indication: TEMPOROMANDIBULAR JOINT SYNDROME
  4. BAYER CHEWABLE LOW DOSE BABY ASPIRIN TABLET ORANGE [Suspect]
     Indication: ISCHAEMIC HEART DISEASE PROPHYLAXIS
     Dosage: 1 DF, QD
     Route: 048
     Dates: end: 201106
  5. LORAZEPAM [Concomitant]

REACTIONS (1)
  - Blood test abnormal [Recovered/Resolved]
